FAERS Safety Report 5881251-6 (Version None)
Quarter: 2008Q3

REPORT INFORMATION
  Report Type: 
  Country: None (occurrence: None)
  Receive Date: 20080912
  Receipt Date: 20080623
  Transmission Date: 20090109
  Serious: No
  Sender: FDA-Public Use
  Company Number: US-ABBOTT-08P-163-0459433-00

PATIENT
  Sex: Female
  Weight: 70.824 kg

DRUGS (15)
  1. HUMIRA [Suspect]
     Indication: RHEUMATOID ARTHRITIS
     Route: 058
     Dates: start: 20070101
  2. HUMIRA [Suspect]
     Route: 058
     Dates: start: 20080501
  3. PREGABALIN [Suspect]
     Indication: PAIN
     Route: 048
  4. PREGABALIN [Suspect]
     Dosage: COMPOUNDED
     Route: 048
  5. DIOXAFLEX PLUS [Concomitant]
     Indication: PAIN
     Route: 048
  6. KAPSOVIT [Concomitant]
     Indication: VITAMIN SUPPLEMENTATION
     Route: 048
  7. CETIRIZINE HYDROCHLORIDE [Concomitant]
     Indication: HYPERSENSITIVITY
     Route: 048
  8. THYROID PILL [Concomitant]
     Indication: HYPOTHYROIDISM
     Route: 048
  9. CYCLOSPORINE [Concomitant]
     Indication: CATARACT OPERATION
     Dosage: TO EYES
  10. HORMONE PATCH [Concomitant]
     Indication: HORMONE THERAPY
     Dosage: TO SKIN
     Route: 062
  11. CALCIUM-SANDOZ [Concomitant]
     Indication: MINERAL SUPPLEMENTATION
     Route: 048
  12. PYRIDOXINE HYDROCHLORIDE [Concomitant]
     Indication: VITAMIN SUPPLEMENTATION
     Route: 048
  13. PREDNISOLONE SODIUM PHOSPHATE [Concomitant]
     Indication: RHEUMATOID ARTHRITIS
     Route: 048
  14. IRON [Concomitant]
     Route: 048
     Dates: start: 20050101
  15. CYANOCOBALAMIN-TANNIN COMPLEX [Concomitant]
     Indication: VITAMIN SUPPLEMENTATION

REACTIONS (6)
  - BLOOD BILIRUBIN INCREASED [None]
  - BLOOD CHOLESTEROL INCREASED [None]
  - DIZZINESS [None]
  - HYPOAESTHESIA [None]
  - OEDEMA PERIPHERAL [None]
  - WEIGHT INCREASED [None]
